FAERS Safety Report 9468948 (Version 2)
Quarter: 2013Q3

REPORT INFORMATION
  Report Type: Spontaneous
  Country: GB (occurrence: None)
  Receive Date: 20130815
  Receipt Date: 20130820
  Transmission Date: 20140515
  Serious: Yes (Disabling)
  Sender: FDA-Public Use
  Company Number: AUR-APL-2013-06643

PATIENT
  Age: 85 Year
  Sex: Male
  Weight: 82.55 kg

DRUGS (2)
  1. TERBINAFINE (TERBINAFINE) [Suspect]
     Indication: FUNGAL INFECTION
     Route: 048
     Dates: start: 20130722, end: 20130724
  2. SEREVENT [Concomitant]

REACTIONS (6)
  - Diarrhoea [None]
  - Fatigue [None]
  - Somnolence [None]
  - Faecal incontinence [None]
  - Decreased appetite [None]
  - Abdominal discomfort [None]
